FAERS Safety Report 7477124-8 (Version None)
Quarter: 2011Q2

REPORT INFORMATION
  Report Type: 
  Country: None (occurrence: None)
  Receive Date: 20110512
  Receipt Date: 20110119
  Transmission Date: 20111010
  Serious: No
  Sender: FDA-Public Use
  Company Number: US-NOVEN-11US001622

PATIENT
  Age: 6 Year
  Sex: Female
  Weight: 19.048 kg

DRUGS (1)
  1. DAYTRANA [Suspect]
     Indication: PRODUCT USED FOR UNKNOWN INDICATION
     Dosage: 10 MG, UNK
     Route: 062
     Dates: start: 20110110

REACTIONS (1)
  - DISTURBANCE IN ATTENTION [None]
